FAERS Safety Report 7251072-0 (Version None)
Quarter: 2011Q1

REPORT INFORMATION
  Report Type: 
  Country: None (occurrence: None)
  Receive Date: 20110128
  Receipt Date: 20101007
  Transmission Date: 20110831
  Serious: Yes (Hospitalization, Other)
  Sender: FDA-Public Use
  Company Number: US-BAYER-200943585NA

PATIENT
  Sex: Female
  Weight: 54.545 kg

DRUGS (25)
  1. ERRIN [Concomitant]
     Indication: CONTRACEPTION
     Dates: start: 20070101, end: 20080101
  2. ANTIBIOTICS [Concomitant]
     Dates: start: 20060101, end: 20070101
  3. ACETAMINOPHEN [Concomitant]
     Dosage: DURING HOSPITAL STAY IN OCT-2006
  4. DOCUSATE SODIUM W/SENNOSIDE A+B [Concomitant]
     Dosage: DURING HOSPITAL STAY IN OCT-2006
  5. LORAZEPAM [Concomitant]
     Dosage: DURING HOSPITAL STAY IN OCT-2006
  6. SYNTHROID [Concomitant]
  7. YASMIN [Suspect]
     Indication: CONTRACEPTION
     Dates: start: 20060301, end: 20061101
  8. ST JOHNS WORT [Concomitant]
     Dates: start: 20030101
  9. TRINESSA [Concomitant]
     Dosage: UNK
     Dates: start: 20060101
  10. LAMICTAL [Concomitant]
     Dates: start: 20080101, end: 20090101
  11. THYROID TAB [Concomitant]
     Dates: start: 20050101, end: 20070101
  12. ASCORBIC ACID [Concomitant]
     Dates: start: 20040101, end: 20080101
  13. YASMIN [Suspect]
     Indication: ACNE
  14. UNCODEABLE ^UNCLASSIFIABLE^ [Concomitant]
     Dates: start: 20090101
  15. CLONAZEPAM [Concomitant]
     Dates: start: 20060101, end: 20070101
  16. LEVOTHYROXINE SODIUM [Concomitant]
     Dates: start: 20080101
  17. THYROID THERAPY [Concomitant]
     Dates: start: 20040101
  18. ZOFRAN [Concomitant]
     Dosage: DURING HOSPITAL STAY IN OCT-2006
     Route: 042
  19. PROCHLORPERAZINE EDISYLATE [Concomitant]
     Dosage: DURING HOSPITAL STAY IN OCT-2006
  20. ENOXAPARIN SODIUM [Concomitant]
     Dosage: DURING HOSPITAL STAY IN OCT-2006
  21. PAXIL CR [Concomitant]
     Dates: start: 20070101, end: 20100101
  22. NALBUPHINE HYDROCHLORIDE [Concomitant]
     Dosage: DURING HOSPITAL STAY IN OCT-2006
     Route: 042
  23. NSAID'S [Concomitant]
     Dates: start: 20040101, end: 20080101
  24. LAXATIVES [Concomitant]
  25. TORADOL [Concomitant]

REACTIONS (14)
  - CEREBROVASCULAR ACCIDENT [None]
  - DEPRESSION [None]
  - DIZZINESS [None]
  - GAIT DISTURBANCE [None]
  - ASTHENIA [None]
  - VERTIGO [None]
  - PARAESTHESIA [None]
  - DEEP VEIN THROMBOSIS [None]
  - HEADACHE [None]
  - VISION BLURRED [None]
  - AMNESIA [None]
  - ANXIETY [None]
  - VISUAL ACUITY REDUCED [None]
  - FATIGUE [None]
